FAERS Safety Report 5546109-0 (Version None)
Quarter: 2007Q4

REPORT INFORMATION
  Report Type: 
  Country: None (occurrence: None)
  Receive Date: 20071211
  Receipt Date: 20071023
  Transmission Date: 20080405
  Serious: No
  Sender: FDA-Public Use
  Company Number: US-BRISTOL-MYERS SQUIBB COMPANY-13952155

PATIENT
  Age: 59 Year
  Sex: Male
  Weight: 77 kg

DRUGS (1)
  1. EMSAM [Suspect]
     Dosage: THE PATIENT HAVE BEEN USING FOR 2 1/2 WEEKS
     Route: 062
     Dates: start: 20070101

REACTIONS (1)
  - DRUG SCREEN POSITIVE [None]
